FAERS Safety Report 17228502 (Version 3)
Quarter: 2022Q2

REPORT INFORMATION
  Report Type: Spontaneous
  Country: US (occurrence: US)
  Receive Date: 20200103
  Receipt Date: 20220408
  Transmission Date: 20220720
  Serious: Yes (Other)
  Sender: FDA-Public Use
  Company Number: US-SUN PHARMACEUTICAL INDUSTRIES LTD-2019R1-232312

PATIENT
  Age: 39 Year
  Sex: Male

DRUGS (1)
  1. CAFFEINE [Suspect]
     Active Substance: CAFFEINE
     Indication: Product used for unknown indication
     Dosage: UNK,50 G
     Route: 048

REACTIONS (2)
  - Intentional overdose [Unknown]
  - Tachyarrhythmia [Recovering/Resolving]
